FAERS Safety Report 15654094 (Version 1)
Quarter: 2018Q4

REPORT INFORMATION
  Report Type: Spontaneous
  Country: US (occurrence: US)
  Receive Date: 20181125
  Receipt Date: 20181125
  Transmission Date: 20190205
  Serious: Yes (Hospitalization, Other)
  Sender: FDA-Public Use
  Company Number: None

PATIENT

DRUGS (1)
  1. FERUMOXYTOL [Suspect]
     Active Substance: FERUMOXYTOL NON-STOICHIOMETRIC MAGNETITE

REACTIONS (6)
  - Back pain [None]
  - Chest discomfort [None]
  - Swelling face [None]
  - Nasal congestion [None]
  - Nausea [None]
  - Blood pressure decreased [None]

NARRATIVE: CASE EVENT DATE: 20180803
